FAERS Safety Report 8760354 (Version 4)
Quarter: 2014Q2

REPORT INFORMATION
  Report Type: Spontaneous
  Country: US (occurrence: US)
  Receive Date: 20120830
  Receipt Date: 20130730
  Transmission Date: 20141212
  Serious: Yes (Death, Life-Threatening, Hospitalization, Other)
  Sender: FDA-Public Use
  Company Number: US-009507513-1208USA010261

PATIENT
  Age: 85 Year
  Sex: Male

DRUGS (9)
  1. INVANZ [Suspect]
     Indication: DIABETIC FOOT INFECTION
     Dosage: 1 G, QD
     Route: 042
     Dates: start: 20120718, end: 20120730
  2. CRESTOR [Concomitant]
  3. JANUVIA [Concomitant]
     Route: 048
  4. BUMETANIDE [Concomitant]
  5. GLYBURIDE [Concomitant]
  6. LISINOPRIL [Concomitant]
  7. METFORMIN [Concomitant]
  8. METOPROLOL [Concomitant]
  9. SERTRALINE HYDROCHLORIDE [Concomitant]

REACTIONS (2)
  - Death [Fatal]
  - Pneumonia [Not Recovered/Not Resolved]
